FAERS Safety Report 17050702 (Version 1)
Quarter: 2019Q4

REPORT INFORMATION
  Report Type: Report from Study
  Country: None (occurrence: US)
  Receive Date: 20191119
  Receipt Date: 20191119
  Transmission Date: 20200122
  Serious: Yes (Other)
  Sender: FDA-Public Use
  Company Number: US-ABBVIE-19K-163-2908897-00

PATIENT
  Sex: Female

DRUGS (1)
  1. HUMIRA [Suspect]
     Active Substance: ADALIMUMAB
     Indication: CROHN^S DISEASE
     Route: 058
     Dates: start: 20190807, end: 201910

REACTIONS (17)
  - Decreased appetite [Not Recovered/Not Resolved]
  - Cough [Unknown]
  - Diarrhoea [Recovering/Resolving]
  - Constipation [Not Recovered/Not Resolved]
  - Upper respiratory tract infection [Unknown]
  - Chest discomfort [Unknown]
  - Anxiety [Recovering/Resolving]
  - Limb discomfort [Unknown]
  - Vomiting [Not Recovered/Not Resolved]
  - Fear [Recovering/Resolving]
  - Depressed mood [Not Recovered/Not Resolved]
  - Nausea [Not Recovered/Not Resolved]
  - Rectal haemorrhage [Not Recovered/Not Resolved]
  - Abdominal pain upper [Not Recovered/Not Resolved]
  - Systemic lupus erythematosus [Unknown]
  - Insomnia [Unknown]
  - Headache [Recovering/Resolving]

NARRATIVE: CASE EVENT DATE: 2019
